FAERS Safety Report 9006003 (Version 1)
Quarter: 2013Q1

REPORT INFORMATION
  Report Type: Spontaneous
  Country: US (occurrence: US)
  Receive Date: 20130109
  Receipt Date: 20130109
  Transmission Date: 20140127
  Serious: No
  Sender: FDA-Public Use
  Company Number: US-PFIZER INC-2004087454

PATIENT
  Age: 65 Year
  Sex: Female

DRUGS (1)
  1. MOTRIN IB [Suspect]
     Dosage: 400 MG, 2 IN 1 TOTAL
     Route: 048
     Dates: start: 20040904

REACTIONS (3)
  - Paraesthesia [Unknown]
  - Rash [Unknown]
  - Chest discomfort [Unknown]
